FAERS Safety Report 16854176 (Version 1)
Quarter: 2019Q3

REPORT INFORMATION
  Report Type: Spontaneous
  Country: US (occurrence: US)
  Receive Date: 20190926
  Receipt Date: 20190926
  Transmission Date: 20191005
  Serious: No
  Sender: FDA-Public Use
  Company Number: US-TEVA-2019-US-1113099

PATIENT
  Age: 74 Year
  Sex: Male

DRUGS (7)
  1. ZOLPIDEM [Concomitant]
     Active Substance: ZOLPIDEM TARTRATE
  2. BUPRENORPHINE. [Suspect]
     Active Substance: BUPRENORPHINE
     Dosage: 10 MCG/HR
     Route: 062
  3. TIZANIDINE. [Concomitant]
     Active Substance: TIZANIDINE
  4. NORCO [Concomitant]
     Active Substance: ACETAMINOPHEN\HYDROCODONE BITARTRATE
  5. LORAZEPAM. [Concomitant]
     Active Substance: LORAZEPAM
  6. MARIJUANA [Concomitant]
     Active Substance: CANNABIS SATIVA SUBSP. INDICA TOP
  7. BUPRENORPHINE. [Suspect]
     Active Substance: BUPRENORPHINE
     Indication: BACK PAIN
     Dosage: 10 MCG/HR
     Route: 062

REACTIONS (5)
  - Product adhesion issue [Unknown]
  - Nausea [Recovering/Resolving]
  - Withdrawal syndrome [Unknown]
  - Anxiety [Unknown]
  - Feeling abnormal [Recovering/Resolving]

NARRATIVE: CASE EVENT DATE: 201909
